FAERS Safety Report 23878719 (Version 1)
Quarter: 2024Q2

REPORT INFORMATION
  Report Type: Spontaneous
  Country: SE (occurrence: SE)
  Receive Date: 20240521
  Receipt Date: 20240521
  Transmission Date: 20240716
  Serious: Yes (Life-Threatening, Hospitalization, Disabling)
  Sender: FDA-Public Use
  Company Number: None

PATIENT
  Age: 15 Year
  Sex: Female
  Weight: 75 kg

DRUGS (8)
  1. FLUOXETINE [Suspect]
     Active Substance: FLUOXETINE HYDROCHLORIDE
     Indication: Depression
     Dosage: 1 TABLET IN THE MORNING DOSE: LATER DOSE: FLUOXETINE RATIOPHARM
     Route: 048
     Dates: start: 20221006, end: 20230420
  2. PROPIOMAZINE [Suspect]
     Active Substance: PROPIOMAZINE
     Indication: Sleep disorder
     Dosage: 1-2 TABLETS AT NIGHT DOSE: LATER DOSE
     Route: 048
     Dates: start: 20221019, end: 20240315
  3. BUPROPION HYDROCHLORIDE [Suspect]
     Active Substance: BUPROPION HYDROCHLORIDE
     Indication: Product used for unknown indication
     Dosage: 1X1 DOSE: LATER DOSE
     Route: 048
     Dates: start: 20210201, end: 20230420
  4. PROMETHAZINE HYDROCHLORIDE\THIOUREA [Suspect]
     Active Substance: PROMETHAZINE HYDROCHLORIDE\THIOUREA
     Indication: Sleep disorder
     Dosage: 1 TABLET AT NIGHT DOSE: LATER DOSE
     Route: 048
     Dates: start: 20210219, end: 20220919
  5. TRIMEPRAZINE TARTRATE [Suspect]
     Active Substance: TRIMEPRAZINE TARTRATE
     Indication: Anxiety
     Dosage: TIME INTERVAL: AS NECESSARY: IF NECESSARY DOSE: FIRST DOSE
     Route: 048
     Dates: start: 20230228, end: 20230301
  6. AGOMELATINE [Suspect]
     Active Substance: AGOMELATINE
     Indication: Depression
     Dosage: TO NIGHT DOSE: LATER DOSE
     Route: 048
     Dates: start: 20230126, end: 20230420
  7. QUETIAPINE FUMARATE [Suspect]
     Active Substance: QUETIAPINE FUMARATE
     Indication: Sleep disorder
     Dosage: 1 TABLET AT NIGHT DOSE: LATER DOSE
     Route: 048
     Dates: start: 20220830, end: 20240315
  8. MIRTAZAPINE [Suspect]
     Active Substance: MIRTAZAPINE
     Indication: Sleep disorder
     Dosage: 1 TABLET AT NIGHT DOSE: LATER DOSE: MIRTAZAPINE ACTAVIS
     Route: 048
     Dates: start: 20210201, end: 20210519

REACTIONS (3)
  - Intentional self-injury [Recovering/Resolving]
  - Anxiety [Unknown]
  - Suicide attempt [Recovered/Resolved]

NARRATIVE: CASE EVENT DATE: 20210401
